FAERS Safety Report 8218384-5 (Version None)
Quarter: 2012Q1

REPORT INFORMATION
  Report Type: 
  Country: None (occurrence: None)
  Receive Date: 20120319
  Receipt Date: 20120315
  Transmission Date: 20120608
  Serious: Yes (Hospitalization)
  Sender: FDA-Public Use
  Company Number: NL-GLAXOSMITHKLINE-B0771844A

PATIENT
  Sex: Female

DRUGS (7)
  1. OXYCODONE HCL [Concomitant]
  2. MAGNESIUM OXIDE [Concomitant]
     Dosage: 1000MG THREE TIMES PER DAY
  3. OMEPRAZOLE [Concomitant]
     Dosage: 40MG TWICE PER DAY
  4. DOCETAXEL [Suspect]
     Indication: NEOPLASM MALIGNANT
     Dosage: 50MGM2 EVERY 3 WEEKS
     Route: 042
     Dates: start: 20110607, end: 20110920
  5. ACETAMINOPHEN [Concomitant]
     Dosage: 1000MG FOUR TIMES PER DAY
  6. VOTRIENT [Suspect]
     Indication: NEOPLASM MALIGNANT
     Dosage: 400MG PER DAY
     Route: 048
     Dates: start: 20110602
  7. RANITIDINE [Concomitant]
     Dosage: 150MG TWICE PER DAY

REACTIONS (1)
  - GASTROENTERITIS [None]
